FAERS Safety Report 25927120 (Version 1)
Quarter: 2025Q4

REPORT INFORMATION
  Report Type: Spontaneous
  Country: CA (occurrence: CA)
  Receive Date: 20251015
  Receipt Date: 20251015
  Transmission Date: 20260117
  Serious: Yes (Death)
  Sender: PFIZER
  Company Number: CA-PFIZER INC-202500167964

PATIENT
  Age: 90 Year
  Sex: Male

DRUGS (1)
  1. VYNDAMAX [Suspect]
     Active Substance: TAFAMIDIS
     Indication: Cardiac amyloidosis
     Dosage: 61 MG, 1X/DAY
     Route: 048
     Dates: start: 20240213

REACTIONS (2)
  - Cardiac failure [Fatal]
  - Asthenia [Unknown]
